FAERS Safety Report 8163269-6 (Version None)
Quarter: 2012Q1

REPORT INFORMATION
  Report Type: 
  Country: None (occurrence: None)
  Receive Date: 20120224
  Receipt Date: 20110215
  Transmission Date: 20120608
  Serious: No
  Sender: FDA-Public Use
  Company Number: US-PFIZER INC-K201100170

PATIENT
  Age: 89 Year
  Sex: Female
  Weight: 68.027 kg

DRUGS (5)
  1. POTASSIUM CHLORIDE [Concomitant]
  2. PLAVIX [Concomitant]
  3. ANAPRIL [Concomitant]
  4. FLECTOR [Suspect]
     Indication: MUSCLE STRAIN
     Dosage: 1 PATCH, QHS FOR 12 HOURS
     Route: 061
     Dates: start: 20110214
  5. VITAMIN B NOS [Concomitant]

REACTIONS (3)
  - CHILLS [None]
  - BODY TEMPERATURE INCREASED [None]
  - PERIPHERAL COLDNESS [None]
